FAERS Safety Report 6957839-8 (Version None)
Quarter: 2010Q3

REPORT INFORMATION
  Report Type: 
  Country: None (occurrence: None)
  Receive Date: 20100831
  Receipt Date: 20100823
  Transmission Date: 20110219
  Serious: Yes (Other)
  Sender: FDA-Public Use
  Company Number: US-SANOFI-AVENTIS-2010SA046959

PATIENT
  Age: 34 Year
  Sex: Female

DRUGS (1)
  1. APIDRA [Suspect]
     Dosage: DOSE:35 UNIT(S)
     Route: 058
     Dates: start: 20100501, end: 20100706

REACTIONS (19)
  - ABDOMINAL DISCOMFORT [None]
  - ANXIETY [None]
  - DECREASED APPETITE [None]
  - DIARRHOEA [None]
  - DISTURBANCE IN ATTENTION [None]
  - FEELING ABNORMAL [None]
  - MALAISE [None]
  - MENSTRUAL DISORDER [None]
  - MUSCULAR WEAKNESS [None]
  - MYALGIA [None]
  - NERVOUSNESS [None]
  - PALPITATIONS [None]
  - PANIC ATTACK [None]
  - PRURITUS [None]
  - RASH [None]
  - SERUM SICKNESS [None]
  - SYNCOPE [None]
  - TACHYPHRENIA [None]
  - TREMOR [None]
